FAERS Safety Report 8082494-6 (Version None)
Quarter: 2012Q1

REPORT INFORMATION
  Report Type: 
  Country: None (occurrence: None)
  Receive Date: 20120127
  Receipt Date: 20110221
  Transmission Date: 20120608
  Serious: No
  Sender: FDA-Public Use
  Company Number: US-ABBOTT-11P-163-0706486-00

PATIENT
  Age: 68 Year
  Sex: Female

DRUGS (12)
  1. DICYCLOMINE [Concomitant]
     Indication: GASTROINTESTINAL DISORDER
     Dosage: 10 MG - THREE TIMES A DAY
  2. LORAZEPAM [Concomitant]
     Indication: INSOMNIA
     Dosage: 1 MG AS NEEDED
  3. PENTASA [Concomitant]
     Indication: CROHN'S DISEASE
     Dosage: 500MGS. THREE TIMES A DAY
  4. ONDANSETRON HCL [Concomitant]
     Indication: NAUSEA
     Dosage: 40 MG  AS NEEDED
  5. SIMVASTATIN [Concomitant]
     Indication: BLOOD CHOLESTEROL INCREASED
     Dosage: 40 MG DAILY
  6. GAS-X [Concomitant]
     Indication: PRODUCT USED FOR UNKNOWN INDICATION
     Dosage: AS NEEDED
  7. HUMIRA [Suspect]
     Indication: CROHN'S DISEASE
     Dates: start: 20110122
  8. DICYCLOMINE [Concomitant]
  9. LOSARTAN POTASSIUM [Concomitant]
     Indication: HYPERTENSION
     Dosage: 50-12.5MG DAILY
  10. SERTRALINE HYDROCHLORIDE [Concomitant]
     Indication: NERVOUSNESS
     Dosage: 50 MG DAILY
  11. OMEPRAZOLE [Concomitant]
     Indication: GASTROOESOPHAGEAL REFLUX DISEASE
     Dosage: 40 MG DAILY
  12. OXYCODONE HCL [Concomitant]
     Indication: PAIN
     Dosage: 5-325MG AS NEEDED

REACTIONS (6)
  - ABDOMINAL DISTENSION [None]
  - FEELING HOT [None]
  - ANXIETY [None]
  - FLATULENCE [None]
  - FEELING ABNORMAL [None]
  - NERVOUSNESS [None]
